FAERS Safety Report 7241656-8 (Version None)
Quarter: 2011Q1

REPORT INFORMATION
  Report Type: 
  Country: None (occurrence: None)
  Receive Date: 20110124
  Receipt Date: 20110111
  Transmission Date: 20110831
  Serious: Yes (Hospitalization)
  Sender: FDA-Public Use
  Company Number: PHHY2010JP13139

PATIENT
  Age: 32 Year
  Sex: Male

DRUGS (4)
  1. EVEROLIMUS [Suspect]
     Indication: HEART TRANSPLANT
     Dosage: 0.75 MG, BID
     Dates: start: 20070801
  2. CICLOSPORIN [Concomitant]
     Indication: HEART TRANSPLANT
     Dosage: 75 MG, BID
  3. MYCOPHENOLATE MOFETIL [Concomitant]
     Indication: HEART TRANSPLANT
  4. EVEROLIMUS [Suspect]
     Indication: PROPHYLAXIS AGAINST TRANSPLANT REJECTION

REACTIONS (13)
  - BURNING SENSATION [None]
  - SYNOVITIS [None]
  - PYREXIA [None]
  - LYMPHOCYTIC INFILTRATION [None]
  - NEUTROPHIL COUNT INCREASED [None]
  - DYSPHAGIA [None]
  - ARTHRALGIA [None]
  - INFLAMMATION [None]
  - APHTHOUS STOMATITIS [None]
  - GAIT DISTURBANCE [None]
  - ERYTHEMA [None]
  - JOINT SWELLING [None]
  - C-REACTIVE PROTEIN INCREASED [None]
